FAERS Safety Report 21862270 (Version 1)
Quarter: 2023Q1

REPORT INFORMATION
  Report Type: Spontaneous
  Country: US (occurrence: US)
  Receive Date: 20230114
  Receipt Date: 20230114
  Transmission Date: 20230417
  Serious: Yes (Death, Hospitalization)
  Sender: FDA-Public Use
  Company Number: US-STRIDES ARCOLAB LIMITED-2023SP000598

PATIENT
  Age: 60 Year
  Sex: Male

DRUGS (13)
  1. PREDNISOLONE [Suspect]
     Active Substance: PREDNISOLONE
     Indication: Cutaneous T-cell lymphoma
     Dosage: 40 MILLIGRAM, IN TAPERING DOSE
     Route: 048
     Dates: start: 201908
  2. TRIAMCINOLONE ACETONIDE [Suspect]
     Active Substance: TRIAMCINOLONE ACETONIDE
     Indication: Cutaneous T-cell lymphoma
     Dosage: UNK, BID, OINTMENT
     Route: 061
     Dates: start: 2019
  3. HYDROCORTISONE [Suspect]
     Active Substance: HYDROCORTISONE
     Indication: Cutaneous T-cell lymphoma
     Dosage: UNK, BID
     Route: 061
     Dates: start: 201908
  4. NAPROXEN [Suspect]
     Active Substance: NAPROXEN
     Indication: Cutaneous T-cell lymphoma
     Dosage: 500 MILLIGRAM, BID
     Route: 065
     Dates: start: 201908
  5. HYDROXYZINE HYDROCHLORIDE [Suspect]
     Active Substance: HYDROXYZINE HYDROCHLORIDE
     Indication: Cutaneous T-cell lymphoma
     Dosage: 10 MILLIGRAM, TID
     Route: 065
     Dates: start: 2019
  6. CETIRIZINE [Suspect]
     Active Substance: CETIRIZINE HYDROCHLORIDE
     Indication: Cutaneous T-cell lymphoma
     Dosage: 10 MILLIGRAM, QD
     Route: 065
     Dates: start: 201908
  7. CLOBETASOL [Suspect]
     Active Substance: CLOBETASOL
     Indication: Cutaneous T-cell lymphoma
     Dosage: UNK, BID
     Route: 061
     Dates: start: 202004
  8. DESONIDE [Suspect]
     Active Substance: DESONIDE
     Indication: Cutaneous T-cell lymphoma
     Dosage: UNK, BID
     Route: 065
     Dates: start: 202004
  9. BEXAROTENE [Suspect]
     Active Substance: BEXAROTENE
     Indication: Cutaneous T-cell lymphoma
     Dosage: 200 MILLIGRAM/SQ. METER
     Route: 048
     Dates: start: 202004
  10. ROMIDEPSIN [Suspect]
     Active Substance: ROMIDEPSIN
     Indication: Cutaneous T-cell lymphoma
     Dosage: 14 MILLIGRAM/SQ. METER, ON DAYS 1, 8, AND 15 OF A 28-DAY TREATMENT CYCLE WAS INITIATED.
     Route: 065
  11. DOXEPIN [Concomitant]
     Active Substance: DOXEPIN
     Indication: Product used for unknown indication
     Dosage: UNK
     Route: 065
     Dates: start: 202002
  12. WARFARIN [Concomitant]
     Active Substance: WARFARIN
     Indication: Product used for unknown indication
     Dosage: UNK, QD
     Route: 065
     Dates: start: 202002
  13. GABAPENTIN [Concomitant]
     Active Substance: GABAPENTIN
     Indication: Product used for unknown indication
     Dosage: UNK, QD
     Route: 065
     Dates: start: 202004

REACTIONS (5)
  - Drug ineffective [Fatal]
  - Staphylococcal bacteraemia [Not Recovered/Not Resolved]
  - Beta haemolytic streptococcal infection [Unknown]
  - Diphtheria [Unknown]
  - Off label use [Unknown]
